FAERS Safety Report 5581817-7 (Version None)
Quarter: 2008Q1

REPORT INFORMATION
  Report Type: 
  Country: None (occurrence: None)
  Receive Date: 20080104
  Receipt Date: 20071220
  Transmission Date: 20080703
  Serious: Yes (Hospitalization)
  Sender: FDA-Public Use
  Company Number: GB-AMGEN-UK258402

PATIENT
  Age: 42 Year
  Sex: Female

DRUGS (4)
  1. NEULASTA [Suspect]
     Indication: CHEMOTHERAPY
  2. GRANISETRON [Suspect]
  3. PACLITAXEL [Suspect]
     Route: 042
  4. CYCLOPHOSPHAMIDE [Concomitant]

REACTIONS (2)
  - BLEPHARITIS [None]
  - DYSPNOEA [None]
